FAERS Safety Report 22195489 (Version 4)
Quarter: 2023Q2

REPORT INFORMATION
  Report Type: Spontaneous
  Country: MX (occurrence: None)
  Receive Date: 20230411
  Receipt Date: 20230518
  Transmission Date: 20230721
  Serious: Yes (Other)
  Sender: FDA-Public Use
  Company Number: MX-ROCHE-3327535

PATIENT
  Age: 61 Year
  Sex: Male

DRUGS (1)
  1. AVASTIN [Suspect]
     Active Substance: BEVACIZUMAB
     Indication: Vitreous haemorrhage
     Route: 050
     Dates: start: 20230328, end: 20230328

REACTIONS (5)
  - Bacterial endophthalmitis [Recovering/Resolving]
  - Transmission of an infectious agent via product [Unknown]
  - Off label use [Unknown]
  - Suspected counterfeit product [Unknown]
  - Off label use [Unknown]

NARRATIVE: CASE EVENT DATE: 20230401
